FAERS Safety Report 23676322 (Version 3)
Quarter: 2024Q2

REPORT INFORMATION
  Report Type: Spontaneous
  Country: NL (occurrence: NL)
  Receive Date: 20240327
  Receipt Date: 20240419
  Transmission Date: 20240716
  Serious: Yes (Hospitalization)
  Sender: FDA-Public Use
  Company Number: NL-ROCHE-3522073

PATIENT
  Age: 67 Year
  Sex: Female
  Weight: 60.3 kg

DRUGS (13)
  1. LENALIDOMIDE [Suspect]
     Active Substance: LENALIDOMIDE
     Indication: Follicular lymphoma stage III
     Dosage: 20 MILLIGRAM, FOUR TIMES/DAY
     Route: 048
     Dates: start: 20220302, end: 20220316
  2. RITUXIMAB [Suspect]
     Active Substance: RITUXIMAB
     Indication: Follicular lymphoma stage III
     Dosage: UNK (C1D1)
     Route: 042
     Dates: start: 20220302, end: 20220302
  3. RITUXIMAB [Suspect]
     Active Substance: RITUXIMAB
     Dosage: UNK (C1D8-C1D22)
     Route: 042
     Dates: start: 20220309, end: 20220330
  4. RITUXIMAB [Suspect]
     Active Substance: RITUXIMAB
     Dosage: UNK (C2D1-C6D1)
     Route: 042
     Dates: start: 20220406, end: 20220727
  5. EPCORITAMAB [Suspect]
     Active Substance: EPCORITAMAB
     Indication: Follicular lymphoma stage III
     Dosage: UNK (C1D1, THE PRIMING DOSE (0.16 MG) ON SAME DAY, THE INTERMEDIATE DOSE (0.8 MG) ON 09/MAR/2022, AN
     Route: 058
     Dates: start: 20220302, end: 20220302
  6. EPCORITAMAB [Suspect]
     Active Substance: EPCORITAMAB
     Dosage: UNK (C!D8)
     Route: 058
     Dates: start: 20220309, end: 20220309
  7. EPCORITAMAB [Suspect]
     Active Substance: EPCORITAMAB
     Dosage: UNK (C!D15)
     Route: 058
     Dates: start: 20220323, end: 20220428
  8. EPCORITAMAB [Suspect]
     Active Substance: EPCORITAMAB
     Dosage: UNK (C3D1-C24D1)
     Route: 058
     Dates: start: 20220504, end: 20240108
  9. ACETAMINOPHEN [Concomitant]
     Active Substance: ACETAMINOPHEN
     Indication: Product used for unknown indication
     Dosage: UNK
     Route: 065
     Dates: start: 20240205, end: 20240205
  10. AMOXICILLIN\CLAVULANATE POTASSIUM [Concomitant]
     Active Substance: AMOXICILLIN\CLAVULANATE POTASSIUM
     Indication: Product used for unknown indication
     Dosage: UNK
     Route: 065
     Dates: start: 20240205, end: 20240222
  11. NADROPARIN [Concomitant]
     Active Substance: NADROPARIN
     Indication: Product used for unknown indication
     Dosage: UNK
     Route: 065
     Dates: start: 20240227, end: 20240301
  12. DOXYCYCLINE [Concomitant]
     Active Substance: DOXYCYCLINE
     Indication: Product used for unknown indication
     Dosage: UNK
     Route: 065
     Dates: start: 202401, end: 20240128
  13. IRON [Concomitant]
     Active Substance: IRON
     Indication: Product used for unknown indication
     Dosage: UNK
     Route: 065
     Dates: start: 20240202, end: 20240205

REACTIONS (1)
  - Haemophilus infection [Recovered/Resolved]

NARRATIVE: CASE EVENT DATE: 20240205
